FAERS Safety Report 16758297 (Version 2)
Quarter: 2020Q2

REPORT INFORMATION
  Report Type: Spontaneous
  Country: US (occurrence: US)
  Receive Date: 20190830
  Receipt Date: 20200629
  Transmission Date: 20200713
  Serious: Yes (Other)
  Sender: FDA-Public Use
  Company Number: US-TEVA-2019-US-1102478

PATIENT
  Age: 70 Year
  Sex: Female

DRUGS (6)
  1. RITUXIMAB. [Concomitant]
     Active Substance: RITUXIMAB
     Dosage: UNK UNK, UNKNOWN FREQ. (SECOND DOSE, SECOND CYCLE)
     Route: 065
  2. BENDAMUSTINE HYDROCHLORIDE. [Suspect]
     Active Substance: BENDAMUSTINE HYDROCHLORIDE
     Dosage: (FIRST DOSE, SECOND CYCLE)
     Route: 042
  3. RITUXIMAB. [Concomitant]
     Active Substance: RITUXIMAB
     Indication: MANTLE CELL LYMPHOMA
     Dosage: (FIRST CYCLE)
     Route: 065
  4. RITUXIMAB. [Concomitant]
     Active Substance: RITUXIMAB
     Dosage: UNK UNK, UNKNOWN FREQ. (FIRST DOSE, SECOND CYCLE)
     Route: 065
  5. BENDAMUSTINE HYDROCHLORIDE. [Suspect]
     Active Substance: BENDAMUSTINE HYDROCHLORIDE
     Indication: MANTLE CELL LYMPHOMA
     Dosage: (FIRST CYCLE)
     Route: 042
  6. BENDAMUSTINE HYDROCHLORIDE. [Suspect]
     Active Substance: BENDAMUSTINE HYDROCHLORIDE
     Dosage: (SECOND DOSE, SECOND CYCLE)
     Route: 042

REACTIONS (2)
  - Drug intolerance [Recovered/Resolved]
  - Drug hypersensitivity [Recovered/Resolved]
